FAERS Safety Report 4848816-1 (Version None)
Quarter: 2005Q4

REPORT INFORMATION
  Report Type: 
  Country: None (occurrence: None)
  Receive Date: 20051115
  Receipt Date: 20050721
  Transmission Date: 20060501
  Serious: Yes (Other)
  Sender: FDA-Public Use
  Company Number: 403311

PATIENT
  Age: 55 Year
  Sex: Female
  Weight: 64.9097 kg

DRUGS (4)
  1. PEGASYS [Suspect]
     Indication: HEPATITIS C
     Dosage: 1 PER WEEK SUBCUTANEOUS
     Route: 058
     Dates: start: 20050115, end: 20050824
  2. COPEGUS [Suspect]
     Indication: HEPATITIS C
     Dosage: 400 MG 2 PER DAY ORAL
     Route: 048
     Dates: start: 20050112, end: 20050824
  3. VITAMIN E (ALPHA-TOCOPHEROL) [Concomitant]
  4. CALCIUM (CALCIUM NOS) [Concomitant]

REACTIONS (17)
  - ALOPECIA [None]
  - DEPRESSION [None]
  - DYSPNOEA [None]
  - EMOTIONAL DISORDER [None]
  - FATIGUE [None]
  - GLOSSODYNIA [None]
  - HAEMOGLOBIN DECREASED [None]
  - INJECTION [None]
  - INJECTION SITE REACTION [None]
  - INSOMNIA [None]
  - MUSCULOSKELETAL PAIN [None]
  - MYALGIA [None]
  - NEUTROPENIA [None]
  - RASH [None]
  - RASH PRURITIC [None]
  - SKIN IRRITATION [None]
  - WHITE BLOOD CELL COUNT DECREASED [None]
